FAERS Safety Report 6638580-8 (Version None)
Quarter: 2010Q1

REPORT INFORMATION
  Report Type: 
  Country: None (occurrence: None)
  Receive Date: 20100312
  Receipt Date: 20100225
  Transmission Date: 20100710
  Serious: Yes (Hospitalization)
  Sender: FDA-Public Use
  Company Number: 2010BI001471

PATIENT
  Age: 53 Year
  Sex: Male

DRUGS (4)
  1. ZEVALIN [Suspect]
     Indication: NON-HODGKIN'S LYMPHOMA
     Dates: start: 20080327, end: 20080327
  2. RITUXIMAB [Concomitant]
  3. CYCLOSPORINE [Concomitant]
  4. FLUDARABINE PHOSPHATE [Concomitant]

REACTIONS (2)
  - CYTOMEGALOVIRUS INFECTION [None]
  - DISEASE RECURRENCE [None]
